FAERS Safety Report 6208028-6 (Version None)
Quarter: 2009Q2

REPORT INFORMATION
  Report Type: 
  Country: None (occurrence: None)
  Receive Date: 20090529
  Receipt Date: 20090304
  Transmission Date: 20091009
  Serious: No
  Sender: FDA-Public Use
  Company Number: US-KINGPHARMUSA00001-K200900234

PATIENT
  Age: 60 Year
  Sex: Female

DRUGS (3)
  1. FLECTOR [Suspect]
     Indication: BACK PAIN
     Dosage: 1 PATCH, PRN
     Route: 061
  2. FLECTOR [Suspect]
     Indication: ARTHRALGIA
     Dosage: 2 PATCHES
     Route: 061
     Dates: start: 20090303, end: 20090304
  3. ANTIHYPERTENSIVES [Concomitant]
     Indication: HYPERTENSION
     Dosage: UNK

REACTIONS (1)
  - ARTHRALGIA [None]
